FAERS Safety Report 9225972 (Version 1)
Quarter: 2013Q2

REPORT INFORMATION
  Report Type: Spontaneous
  Country: US (occurrence: US)
  Receive Date: 20130411
  Receipt Date: 20130411
  Transmission Date: 20140414
  Serious: No
  Sender: FDA-Public Use
  Company Number: US-ASTELLAS-2012US012569

PATIENT
  Sex: Female

DRUGS (2)
  1. PROTOPIC [Suspect]
     Indication: DERMATITIS
     Dosage: 0.03 %, UID/QD
     Route: 061
     Dates: start: 20121202, end: 20130115
  2. PROTOPIC [Suspect]
     Dosage: 0.03 %, ONCE IN A WHILE
     Route: 061

REACTIONS (3)
  - Drug ineffective [Unknown]
  - Urticaria [Unknown]
  - Pruritus [Not Recovered/Not Resolved]
